FAERS Safety Report 4297071-2 (Version None)
Quarter: 2004Q1

REPORT INFORMATION
  Report Type: 
  Country: None (occurrence: None)
  Receive Date: 20040126
  Receipt Date: 20030929
  Transmission Date: 20041129
  Serious: No
  Sender: FDA-Public Use
  Company Number: USA030946004

PATIENT
  Age: 6 Year
  Sex: Male
  Weight: 24 kg

DRUGS (2)
  1. STRATTERA [Suspect]
     Indication: ATTENTION DEFICIT/HYPERACTIVITY DISORDER
     Dosage: 15 MG/1 IN THE MORNING
     Dates: start: 20030811, end: 20030929
  2. RITALIN [Concomitant]

REACTIONS (3)
  - CHOKING [None]
  - RETCHING [None]
  - VOMITING [None]
